FAERS Safety Report 10563974 (Version 1)
Quarter: 2014Q4

REPORT INFORMATION
  Report Type: Spontaneous
  Country: FR (occurrence: FR)
  Receive Date: 20141104
  Receipt Date: 20141104
  Transmission Date: 20150529
  Serious: Yes (Hospitalization)
  Sender: FDA-Public Use
  Company Number: FR-ASTRAZENECA-2014SE82787

PATIENT
  Age: 27494 Day
  Sex: Male

DRUGS (12)
  1. COVERAM [Concomitant]
     Active Substance: AMLODIPINE\PERINDOPRIL
     Dosage: 5/10 1 DF AT NIGHT
  2. AVODART [Concomitant]
     Active Substance: DUTASTERIDE
     Indication: PROSTATIC DISORDER
     Dates: start: 2013
  3. TENORMIN [Concomitant]
     Active Substance: ATENOLOL
     Indication: HYPERTENSION
  4. KARDEGIC [Concomitant]
     Active Substance: ASPIRIN LYSINE
  5. LEXOMIL [Concomitant]
     Active Substance: BROMAZEPAM
  6. XANAX [Concomitant]
     Active Substance: ALPRAZOLAM
  7. MOPRAL [Concomitant]
     Active Substance: OMEPRAZOLE SODIUM
  8. OMEXEL [Concomitant]
     Active Substance: TAMSULOSIN HYDROCHLORIDE
     Indication: PROSTATIC ADENOMA
     Dosage: AT MIDDAY
  9. BRILIQUE [Suspect]
     Active Substance: TICAGRELOR
     Indication: MYOCARDIAL INFARCTION
     Route: 048
     Dates: start: 20130714
  10. TENORMIN [Concomitant]
     Active Substance: ATENOLOL
     Indication: HYPERTENSION
     Dosage: SOMETIMES 2 TABLETS
  11. DIFFU K [Concomitant]
     Active Substance: POTASSIUM CHLORIDE
  12. CRESTOR [Concomitant]
     Active Substance: ROSUVASTATIN CALCIUM

REACTIONS (2)
  - Haematoma [Not Recovered/Not Resolved]
  - Acute coronary syndrome [Unknown]

NARRATIVE: CASE EVENT DATE: 201312
